FAERS Safety Report 5932555-X (Version None)
Quarter: 2008Q4

REPORT INFORMATION
  Report Type: 
  Country: None (occurrence: None)
  Receive Date: 20081009
  Receipt Date: 20071012
  Transmission Date: 20090506
  Serious: Yes (Other)
  Sender: FDA-Public Use
  Company Number: PHEH2007US13619

PATIENT
  Age: 45 Year
  Sex: Female
  Weight: 48.1 kg

DRUGS (4)
  1. ZOMETA [Suspect]
     Indication: RESORPTION BONE INCREASED
     Dosage: 4 MG TWICE ANUALLY, INTRAVENOUS
     Route: 042
  2. ARIMIDEX [Concomitant]
  3. PROZAC [Concomitant]
  4. VICOPROFEN (HYDROCODONE, HYDROCODONE BITARTRATE, IBUPROFEN) [Concomitant]

REACTIONS (4)
  - CHEST PAIN [None]
  - NAUSEA [None]
  - PAIN [None]
  - VOMITING [None]
